FAERS Safety Report 12716692 (Version 2)
Quarter: 2016Q3

REPORT INFORMATION
  Report Type: Spontaneous
  Country: CH (occurrence: CH)
  Receive Date: 20160906
  Receipt Date: 20160908
  Transmission Date: 20161109
  Serious: Yes (Life-Threatening)
  Sender: FDA-Public Use
  Company Number: CH-PFIZER INC-2016412464

PATIENT
  Age: 75 Year
  Sex: Male

DRUGS (9)
  1. TRIATEC [Suspect]
     Active Substance: RAMIPRIL
     Indication: HYPERTENSION
     Dosage: 2.5 MG, DAILY
     Route: 048
     Dates: end: 20151024
  2. DILATREND [Interacting]
     Active Substance: CARVEDILOL
     Indication: HYPERTENSION
     Dosage: 3.125 MG, DAILY
     Route: 048
     Dates: end: 20151027
  3. ALDACTONE [Interacting]
     Active Substance: SPIRONOLACTONE
     Indication: HYPERTENSION
     Dosage: 25 MG, DAILY
     Route: 048
     Dates: start: 20151025, end: 20151025
  4. CRESTOR [Concomitant]
     Active Substance: ROSUVASTATIN CALCIUM
     Dosage: 10 MG, 1X/DAY
     Route: 048
  5. TOREM /01036501/ [Concomitant]
     Active Substance: TORSEMIDE
     Dosage: 10 MG, 1X/DAY
     Route: 048
     Dates: end: 20151027
  6. ASPIRIN CARDIO [Concomitant]
     Active Substance: ASPIRIN
     Dosage: 100 MG, 1X/DAY
     Route: 048
  7. NEXIUM [Concomitant]
     Active Substance: ESOMEPRAZOLE MAGNESIUM
     Dosage: 40 MG, 1X/DAY
     Route: 048
  8. PLAVIX [Concomitant]
     Active Substance: CLOPIDOGREL BISULFATE
     Dosage: 75 MG, 1X/DAY
     Route: 048
  9. CORDARONE [Concomitant]
     Active Substance: AMIODARONE HYDROCHLORIDE
     Dosage: 200 MG, 1X/DAY
     Route: 048

REACTIONS (6)
  - Cardiogenic shock [Recovered/Resolved]
  - Chronic kidney disease [Recovered/Resolved]
  - Hyperkalaemia [Recovered/Resolved]
  - Drug interaction [Recovered/Resolved]
  - Bradyarrhythmia [Recovered/Resolved]
  - Condition aggravated [Recovered/Resolved]

NARRATIVE: CASE EVENT DATE: 20151027
